FAERS Safety Report 23278236 (Version 1)
Quarter: 2023Q4

REPORT INFORMATION
  Report Type: Spontaneous
  Country: CA (occurrence: None)
  Receive Date: 20231208
  Receipt Date: 20231208
  Transmission Date: 20240110
  Serious: Yes (Hospitalization, Other)
  Sender: FDA-Public Use
  Company Number: 2023A278838

PATIENT
  Age: 76 Year
  Sex: Male

DRUGS (15)
  1. QUETIAPINE [Suspect]
     Active Substance: QUETIAPINE
     Indication: Hallucination, visual
     Route: 048
     Dates: start: 202106
  2. QUETIAPINE [Suspect]
     Active Substance: QUETIAPINE
     Indication: Hallucination, visual
     Route: 048
     Dates: start: 202106
  3. QUETIAPINE [Suspect]
     Active Substance: QUETIAPINE
     Indication: Hallucination, visual
     Route: 048
     Dates: start: 202106
  4. QUETIAPINE [Suspect]
     Active Substance: QUETIAPINE
     Indication: Hallucination, visual
     Route: 048
     Dates: start: 202106
  5. OLANZAPINE [Suspect]
     Active Substance: OLANZAPINE
     Indication: Post-traumatic stress disorder
     Dosage: 2.5 MILLIGRAM IN 1 DAY
  6. OLANZAPINE [Suspect]
     Active Substance: OLANZAPINE
     Indication: Social problem
     Dosage: 2.5 MILLIGRAM IN 1 DAY
  7. OLANZAPINE [Suspect]
     Active Substance: OLANZAPINE
     Indication: Agitation
     Dosage: 2.5 MILLIGRAM IN 1 DAY
  8. CLONAZEPAM [Suspect]
     Active Substance: CLONAZEPAM
  9. RIVASTIGMINE [Suspect]
     Active Substance: RIVASTIGMINE
     Dosage: 1.5 MG, BID
  10. CITALOPRAM [Suspect]
     Active Substance: CITALOPRAM HYDROBROMIDE
     Dosage: 20 MG
  11. TRAZODONE [Suspect]
     Active Substance: TRAZODONE HYDROCHLORIDE
     Dosage: 25 MILLIGRAM IN 1 DAY
  12. TRAZODONE [Suspect]
     Active Substance: TRAZODONE HYDROCHLORIDE
     Dosage: 50 MILLIGRAM IN 1 DAY
  13. TRAZODONE [Suspect]
     Active Substance: TRAZODONE HYDROCHLORIDE
     Dosage: 100 MILLIGRAM IN 1 DAY
  14. TRAZODONE [Suspect]
     Active Substance: TRAZODONE HYDROCHLORIDE
     Dosage: 50 MILLIGRAM 3 TIMES PER DAY
  15. RISPERIDONE [Suspect]
     Active Substance: RISPERIDONE
     Dosage: 0.25 MILLIGRAM TWICE DAILY

REACTIONS (2)
  - Off label use [Recovered/Resolved]
  - Parkinsonism [Recovered/Resolved]

NARRATIVE: CASE EVENT DATE: 20210601
